FAERS Safety Report 4396665-3 (Version None)
Quarter: 2004Q3

REPORT INFORMATION
  Report Type: 
  Country: None (occurrence: None)
  Receive Date: 20040708
  Receipt Date: 20040701
  Transmission Date: 20050211
  Serious: Yes (Life-Threatening, Hospitalization)
  Sender: FDA-Public Use
  Company Number: STA-AE-04-MTX-281

PATIENT
  Age: 54 Year
  Sex: Male

DRUGS (12)
  1. RHEUMATREX [Suspect]
     Indication: RHEUMATOID ARTHRITIS
     Dosage: 8 MG 1X PER 1 WK, ORAL
     Route: 048
     Dates: start: 20010628
  2. METHOTREXATE [Suspect]
     Indication: RHEUMATOID ARTHRITIS
     Dosage: 5 MG 1 X PER 1 WK, ORAL
     Route: 048
     Dates: start: 19980601, end: 19980721
  3. METHOTREXATE [Suspect]
     Indication: RHEUMATOID ARTHRITIS
     Dosage: 7.5 MG 1X PER 1 WK, ORAL
     Route: 048
     Dates: start: 19980722, end: 20010627
  4. PREDNISOLONE [Suspect]
     Indication: RHEUMATOID ARTHRITIS
     Dosage: 10 MG 1X PER 1 DAY, ORAL
     Route: 053
     Dates: start: 20030908
  5. REMICADE [Suspect]
     Indication: RHEUMATOID ARTHRITIS
     Dosage: 3 MG/KG/DAY, INTRAVENOUS
     Route: 042
     Dates: start: 20030909, end: 20030909
  6. REMICADE [Suspect]
     Indication: RHEUMATOID ARTHRITIS
     Dosage: 3 MG/KG/DAY, INTRAVENOUS
     Route: 042
     Dates: start: 20030925, end: 20030925
  7. AZULFIDINE [Concomitant]
  8. LOXONIN        (LOXOPROFEN SODIUM) [Concomitant]
  9. FOLIC ACID [Concomitant]
  10. TAGAMET [Concomitant]
  11. KELNAC    (PLAUNOTOL) [Concomitant]
  12. ALFACALCIDOL    (ALFACALCIDOL) [Concomitant]

REACTIONS (2)
  - PLEURISY [None]
  - PNEUMONIA [None]
